FAERS Safety Report 16883643 (Version 1)
Quarter: 2019Q4

REPORT INFORMATION
  Report Type: Report from Study
  Country: MX (occurrence: MX)
  Receive Date: 20191004
  Receipt Date: 20191004
  Transmission Date: 20200122
  Serious: Yes (Other)
  Sender: FDA-Public Use
  Company Number: MX-SA-2018SA321163

PATIENT
  Age: 21 Year
  Sex: Female
  Weight: 45 kg

DRUGS (1)
  1. ALEMTUZUMAB [Suspect]
     Active Substance: ALEMTUZUMAB
     Indication: MULTIPLE SCLEROSIS
     Dosage: 1 VIAL, UNK (STRENGTH-12 MG/1.2 ML)
     Route: 041
     Dates: start: 201810, end: 201810

REACTIONS (21)
  - Rash [Not Recovered/Not Resolved]
  - Protein urine present [Unknown]
  - Haematocrit decreased [Unknown]
  - Blood creatinine decreased [Unknown]
  - Crystalluria [Unknown]
  - Lymphocyte count decreased [Unknown]
  - Red blood cell count decreased [Unknown]
  - White blood cell count decreased [Unknown]
  - Abdominal pain upper [Recovered/Resolved]
  - Red cell distribution width increased [Unknown]
  - Monocyte percentage decreased [Unknown]
  - Herpes zoster [Not Recovered/Not Resolved]
  - Eosinophil count decreased [Unknown]
  - Neck pain [Not Recovered/Not Resolved]
  - Urine abnormality [Unknown]
  - Mean cell haemoglobin concentration increased [Unknown]
  - Blood cholinesterase increased [Unknown]
  - Bacterial test positive [Unknown]
  - Lymphocyte percentage decreased [Unknown]
  - Urinary sediment present [Unknown]
  - Neutrophil count decreased [Unknown]

NARRATIVE: CASE EVENT DATE: 20181116
